FAERS Safety Report 6043808-1 (Version None)
Quarter: 2009Q1

REPORT INFORMATION
  Report Type: 
  Country: None (occurrence: None)
  Receive Date: 20090120
  Receipt Date: 20090112
  Transmission Date: 20090719
  Serious: Yes (Other)
  Sender: FDA-Public Use
  Company Number: US-AMGEN-KDL320266

PATIENT
  Sex: Male

DRUGS (3)
  1. PROCRIT [Suspect]
     Indication: RENAL FAILURE ACUTE
     Route: 058
     Dates: end: 20081101
  2. MYCOPHENOLATE MOFETIL [Concomitant]
     Dates: start: 19950101
  3. CYCLOSPORINE [Concomitant]
     Dates: start: 19950101

REACTIONS (3)
  - APLASIA PURE RED CELL [None]
  - HYPERPARATHYROIDISM [None]
  - THERAPEUTIC RESPONSE DECREASED [None]
